FAERS Safety Report 11593469 (Version 4)
Quarter: 2015Q4

REPORT INFORMATION
  Report Type: Spontaneous
  Country: UA (occurrence: UA)
  Receive Date: 20151005
  Receipt Date: 20151103
  Transmission Date: 20160304
  Serious: Yes (Other)
  Sender: FDA-Public Use
  Company Number: UA-B.I. PHARMACEUTICALS,INC./RIDGEFIELD-2015-BI-53045UA

PATIENT
  Age: 40 Year
  Sex: Female

DRUGS (4)
  1. XARELTO [Concomitant]
     Active Substance: RIVAROXABAN
     Indication: VENOUS THROMBOSIS LIMB
     Dosage: 10 MG
     Route: 048
     Dates: start: 20150928, end: 20151028
  2. CLEXAN [Concomitant]
     Indication: VENOUS THROMBOSIS LIMB
     Dosage: 1.6 MG
     Route: 058
     Dates: start: 20150902, end: 20150907
  3. CLEXAN [Concomitant]
     Indication: VENOUS THROMBOSIS LIMB
     Dosage: 1.6 MG
     Route: 058
     Dates: start: 20150923, end: 20150928
  4. PRADAXA [Suspect]
     Active Substance: DABIGATRAN ETEXILATE MESYLATE
     Indication: VENOUS THROMBOSIS LIMB
     Dosage: 300 MG
     Route: 048
     Dates: end: 20150924

REACTIONS (1)
  - Drug ineffective [Recovered/Resolved]

NARRATIVE: CASE EVENT DATE: 20150902
